FAERS Safety Report 7762161-6 (Version None)
Quarter: 2011Q3

REPORT INFORMATION
  Report Type: 
  Country: None (occurrence: None)
  Receive Date: 20110920
  Receipt Date: 20101213
  Transmission Date: 20111222
  Serious: Yes (Life-Threatening, Hospitalization)
  Sender: FDA-Public Use
  Company Number: AU-ROCHE-754337

PATIENT
  Sex: Male

DRUGS (9)
  1. HEPARIN SODIUM [Concomitant]
  2. IPRATROPIUM BROMIDE [Concomitant]
  3. CEFTRIAXONE [Concomitant]
  4. PANTOPRAZOLE [Concomitant]
  5. ALBUTEROL [Concomitant]
  6. TAMIFLU [Suspect]
     Dosage: FREQUENCY: DAILY.
     Route: 048
     Dates: start: 20100906, end: 20100906
  7. HYDROCORTISONE [Suspect]
     Dosage: FREQUENCY: DAILY.
     Route: 065
     Dates: start: 20100906, end: 20100907
  8. THIAMINE HCL [Concomitant]
  9. AZITHROMYCIN [Concomitant]

REACTIONS (1)
  - STATUS EPILEPTICUS [None]
